FAERS Safety Report 10060413 (Version 2)
Quarter: 2014Q2

REPORT INFORMATION
  Report Type: Spontaneous
  Country: US (occurrence: US)
  Receive Date: 20140404
  Receipt Date: 20140404
  Transmission Date: 20141212
  Serious: Yes (Other)
  Sender: FDA-Public Use
  Company Number: US-PFIZER INC-2014092729

PATIENT
  Age: 68 Year
  Sex: Male

DRUGS (10)
  1. IBUPROFEN [Suspect]
     Indication: PAIN
  2. HYDROCHLOROTHIAZIDE [Suspect]
  3. LEVOFLOXACIN [Suspect]
     Indication: BRONCHITIS
     Dosage: UNK
  4. AURANOFIN [Suspect]
     Indication: PSORIATIC ARTHROPATHY
     Route: 048
  5. ATENOLOL [Concomitant]
  6. CLOPIDOGREL [Concomitant]
  7. ASPIRIN [Concomitant]
  8. SIMVASTATIN [Concomitant]
  9. LOSARTAN [Concomitant]
  10. OMEPRAZOLE [Concomitant]

REACTIONS (1)
  - Tubulointerstitial nephritis [Recovered/Resolved]
